FAERS Safety Report 5115050-X (Version None)
Quarter: 2006Q3

REPORT INFORMATION
  Report Type: 
  Country: None (occurrence: None)
  Receive Date: 20060921
  Receipt Date: 20060801
  Transmission Date: 20061208
  Serious: Yes (Death)
  Sender: FDA-Public Use
  Company Number: 2006RR-03111

PATIENT
  Age: 55 Year
  Sex: Male

DRUGS (2)
  1. CO-AMOXICLAV          (AMOXICILLIN TRIHYDRATE 250 MG, CLAVULANIC ACID) [Suspect]
     Dosage: ORAL
     Route: 048
     Dates: start: 20060215, end: 20060220
  2. CO-AMOXICLAV          (AMOXICILLIN TRIHYDRATE 250 MG, CLAVULANIC ACID) [Suspect]
     Dosage: ORAL
     Route: 048
     Dates: start: 20060313, end: 20060321

REACTIONS (3)
  - HEPATIC FAILURE [None]
  - JAUNDICE [None]
  - SEPSIS [None]
